FAERS Safety Report 9209643 (Version 2)
Quarter: 2014Q1

REPORT INFORMATION
  Report Type: Spontaneous
  Country: US (occurrence: US)
  Receive Date: 20130404
  Receipt Date: 20140120
  Transmission Date: 20141002
  Serious: Yes (Hospitalization, Other)
  Sender: FDA-Public Use
  Company Number: US-BAYER-2013-040293

PATIENT
  Age: 18 Year
  Sex: Female

DRUGS (5)
  1. YASMIN [Suspect]
  2. HYDROCODONE W/APAP [Concomitant]
     Dosage: 5-500 MG
  3. NAPROXEN SODIUM [Concomitant]
     Dosage: 550 MG, UNK
  4. TAZORAC [Concomitant]
     Dosage: 0.05 %, UNK
  5. SULFAMETHOXAZOLE [Concomitant]

REACTIONS (7)
  - Gallbladder injury [None]
  - Cholecystitis acute [None]
  - Injury [None]
  - Anxiety [None]
  - Anhedonia [None]
  - Quality of life decreased [None]
  - Pain [None]
